FAERS Safety Report 17689782 (Version 1)
Quarter: 2020Q2

REPORT INFORMATION
  Report Type: Spontaneous
  Country: US (occurrence: US)
  Receive Date: 20200421
  Receipt Date: 20200421
  Transmission Date: 20200714
  Serious: Yes (Disabling, Other)
  Sender: FDA-Public Use
  Company Number: US-REGENERON PHARMACEUTICALS, INC.-2020-30912

PATIENT

DRUGS (2)
  1. EYLEA [Suspect]
     Active Substance: AFLIBERCEPT
     Indication: NEOVASCULAR AGE-RELATED MACULAR DEGENERATION
     Dosage: 2 MG, EVERY 1-2 MONTHS
     Route: 031
     Dates: start: 201803
  2. EYLEA [Suspect]
     Active Substance: AFLIBERCEPT
     Dosage: 2 MG, EVERY 1-2 MONTHS
     Route: 031
     Dates: start: 20200227, end: 20200227

REACTIONS (3)
  - Refusal of treatment by patient [Unknown]
  - Ill-defined disorder [Unknown]
  - Blindness [Unknown]

NARRATIVE: CASE EVENT DATE: 20200326
